FAERS Safety Report 7785003-1 (Version None)
Quarter: 2011Q3

REPORT INFORMATION
  Report Type: 
  Country: None (occurrence: None)
  Receive Date: 20110928
  Receipt Date: 20110915
  Transmission Date: 20111222
  Serious: Yes (Hospitalization)
  Sender: FDA-Public Use
  Company Number: PHEH2011US04633

PATIENT
  Age: 39 Year
  Sex: Female
  Weight: 79 kg

DRUGS (20)
  1. NUVIGIL [Concomitant]
     Indication: SOMNOLENCE
     Dosage: 500 MG, DAILY
     Route: 048
     Dates: start: 20100122
  2. BACLOFEN [Concomitant]
     Indication: MUSCLE SPASMS
     Dosage: 60 MG, DAILY
     Route: 048
     Dates: start: 20071213
  3. INTERFERON BETA-1A [Concomitant]
     Indication: PROGRESSIVE MULTIPLE SCLEROSIS
     Route: 030
  4. NALTREXONE HYDROCHLORIDE [Concomitant]
     Indication: PAIN
  5. GILENYA [Suspect]
     Indication: MULTIPLE SCLEROSIS
     Dosage: 0.5 MG, DAILY
     Route: 048
     Dates: start: 20110506
  6. NEURONTIN [Concomitant]
     Indication: PARAESTHESIA
     Dosage: 2400 MG, DAILY
     Route: 048
     Dates: start: 20100113
  7. BACLOFEN [Concomitant]
     Indication: PAIN
  8. TYSABRI [Concomitant]
     Indication: PROGRESSIVE MULTIPLE SCLEROSIS
     Dosage: 300 MG / 15 ML MONTHLY
     Route: 042
     Dates: start: 20100311
  9. INTERFERON BETA-1A [Concomitant]
     Route: 058
  10. NEURONTIN [Concomitant]
     Indication: NEURALGIA
  11. REMERON [Concomitant]
     Indication: INSOMNIA
     Dosage: 30 MG, DAILY
     Route: 048
     Dates: start: 20100727
  12. NALTREXONE HYDROCHLORIDE [Concomitant]
     Indication: PROGRESSIVE MULTIPLE SCLEROSIS
     Dosage: 4.5 MG, DAILY
     Route: 048
     Dates: start: 20100425
  13. INTERFERON BETA-1B [Concomitant]
     Indication: PROGRESSIVE MULTIPLE SCLEROSIS
     Route: 058
  14. GLATIRAMER ACETATE [Concomitant]
     Indication: PROGRESSIVE MULTIPLE SCLEROSIS
     Dosage: UNK UKN, UNK
  15. NALTREXONE HYDROCHLORIDE [Concomitant]
     Indication: MOBILITY DECREASED
  16. NUVIGIL [Concomitant]
     Indication: FATIGUE
  17. TYSABRI [Concomitant]
     Indication: MOBILITY DECREASED
  18. NEXIUM [Concomitant]
     Indication: IRRITABLE BOWEL SYNDROME
     Dosage: 40 MG, DAILY
     Route: 048
     Dates: start: 20090302
  19. MODAFINIL [Concomitant]
     Indication: PROGRESSIVE MULTIPLE SCLEROSIS
  20. TYSABRI [Concomitant]
     Indication: NEURALGIA

REACTIONS (2)
  - PELVIC PAIN [None]
  - ABDOMINAL PAIN UPPER [None]
